FAERS Safety Report 12841003 (Version 4)
Quarter: 2017Q2

REPORT INFORMATION
  Report Type: Report from Study
  Country: None (occurrence: CA)
  Receive Date: 20161012
  Receipt Date: 20170419
  Transmission Date: 20170830
  Serious: Yes (Hospitalization, Disabling, Other)
  Sender: FDA-Public Use
  Company Number: CA-ABBVIE-16K-028-1748410-00

PATIENT
  Sex: Male

DRUGS (1)
  1. HUMIRA [Suspect]
     Active Substance: ADALIMUMAB
     Indication: CROHN^S DISEASE
     Route: 058
     Dates: start: 20070608, end: 2016

REACTIONS (16)
  - Abasia [Recovered/Resolved]
  - Gangrene [Not Recovered/Not Resolved]
  - Purulence [Not Recovered/Not Resolved]
  - Wound [Not Recovered/Not Resolved]
  - Localised infection [Recovered/Resolved]
  - Dehydration [Unknown]
  - Insomnia [Recovered/Resolved]
  - Pain in extremity [Unknown]
  - Malnutrition [Unknown]
  - Post procedural infection [Not Recovered/Not Resolved]
  - Pain [Not Recovered/Not Resolved]
  - Hyperkeratosis [Recovered/Resolved]
  - Treatment noncompliance [Unknown]
  - Foot amputation [Not Recovered/Not Resolved]
  - Foot operation [Unknown]
  - Thrombosis [Not Recovered/Not Resolved]

NARRATIVE: CASE EVENT DATE: 2016
